FAERS Safety Report 8248059-8 (Version None)
Quarter: 2012Q1

REPORT INFORMATION
  Report Type: 
  Country: None (occurrence: None)
  Receive Date: 20120330
  Receipt Date: 20120326
  Transmission Date: 20120608
  Serious: No
  Sender: FDA-Public Use
  Company Number: US-BAYER-2012-030784

PATIENT
  Age: 73 Year
  Sex: Female
  Weight: 59 kg

DRUGS (4)
  1. MULTI-VITAMIN [Concomitant]
  2. ALEVE (CAPLET) [Suspect]
     Indication: ARTHRITIS
     Dosage: 2 CAPLETS ONCE DAILY
     Route: 048
     Dates: start: 20120208, end: 20120323
  3. BONIVA [Concomitant]
  4. CALCIUM WITH VITAMIN D [Concomitant]

REACTIONS (1)
  - ARTHRALGIA [None]
